FAERS Safety Report 26025988 (Version 1)
Quarter: 2025Q4

REPORT INFORMATION
  Report Type: Spontaneous
  Country: US (occurrence: None)
  Receive Date: 20251110
  Receipt Date: 20251110
  Transmission Date: 20260117
  Serious: No
  Sender: FDA-CTU
  Company Number: None

PATIENT
  Age: 38 Year
  Sex: Female
  Weight: 75.15 kg

DRUGS (6)
  1. FERRIC DERISOMALTOSE [Suspect]
     Active Substance: FERRIC DERISOMALTOSE
     Indication: Serum ferritin decreased
     Dates: start: 20251106, end: 20251106
  2. OMEPRAZOLE [Concomitant]
     Active Substance: OMEPRAZOLE
  3. Busparone [Concomitant]
  4. ZOLOFT [Concomitant]
     Active Substance: SERTRALINE HYDROCHLORIDE
  5. ZYRTEC [Concomitant]
     Active Substance: CETIRIZINE HYDROCHLORIDE
  6. VITAMINS [Concomitant]
     Active Substance: VITAMINS

REACTIONS (8)
  - Hypersensitivity [None]
  - Periorbital swelling [None]
  - Eye pruritus [None]
  - Lacrimation increased [None]
  - Throat irritation [None]
  - Throat tightness [None]
  - Dyspnoea [None]
  - Sneezing [None]

NARRATIVE: CASE EVENT DATE: 20251106
